FAERS Safety Report 7944933-8 (Version None)
Quarter: 2011Q4

REPORT INFORMATION
  Report Type: 
  Country: None (occurrence: None)
  Receive Date: 20111129
  Receipt Date: 20111122
  Transmission Date: 20120403
  Serious: No
  Sender: FDA-Public Use
  Company Number: PHEH2011US010233

PATIENT
  Sex: Male

DRUGS (4)
  1. SUSTIVA [Concomitant]
     Dosage: UNK
     Dates: start: 20111120
  2. VIREAD [Concomitant]
     Dosage: UNK
     Dates: start: 20111120
  3. TASIGNA [Suspect]
     Dosage: 300 MG, BID
     Route: 048
     Dates: start: 20111118
  4. EPZICOM [Concomitant]
     Dosage: UNK
     Dates: start: 20111120

REACTIONS (2)
  - DYSPNOEA [None]
  - RASH PRURITIC [None]
